FAERS Safety Report 13551776 (Version 1)
Quarter: 2017Q2

REPORT INFORMATION
  Report Type: Spontaneous
  Country: HU (occurrence: HU)
  Receive Date: 20170516
  Receipt Date: 20170516
  Transmission Date: 20170830
  Serious: Yes (Hospitalization, Other)
  Sender: FDA-Public Use
  Company Number: HU-UNICHEM LABORATORIES LIMITED-UCM201705-000114

PATIENT
  Age: 27 Year
  Sex: Male

DRUGS (1)
  1. DIVALPROEX SODIUM. [Suspect]
     Active Substance: DIVALPROEX SODIUM

REACTIONS (13)
  - Toxicity to various agents [Recovering/Resolving]
  - Atrial fibrillation [Recovering/Resolving]
  - Sepsis [Unknown]
  - Toxic encephalopathy [Unknown]
  - Brain oedema [Unknown]
  - Shock [Unknown]
  - Hyperammonaemia [Unknown]
  - Thrombocytopenia [Unknown]
  - Overdose [Unknown]
  - Drug level increased [Unknown]
  - Leukopenia [Unknown]
  - Hypernatraemia [Unknown]
  - Bone marrow failure [Unknown]
